FAERS Safety Report 17075955 (Version 4)
Quarter: 2020Q2

REPORT INFORMATION
  Report Type: Spontaneous
  Country: US (occurrence: US)
  Receive Date: 20191126
  Receipt Date: 20200601
  Transmission Date: 20200713
  Serious: Yes (Hospitalization, Other)
  Sender: FDA-Public Use
  Company Number: US-GILEAD-2019-0439498

PATIENT
  Age: 55 Year
  Sex: Male
  Weight: 68.03 kg

DRUGS (90)
  1. DEXILANT [Concomitant]
     Active Substance: DEXLANSOPRAZOLE
     Dosage: UNK
     Dates: start: 20190218
  2. FELODIPINE. [Concomitant]
     Active Substance: FELODIPINE
     Dosage: UNK
     Dates: start: 20131122
  3. VALACYCLOVIR [Concomitant]
     Active Substance: VALACYCLOVIR HYDROCHLORIDE
  4. TRAZODONE [Concomitant]
     Active Substance: TRAZODONE HYDROCHLORIDE
  5. NALOXONE [Concomitant]
     Active Substance: NALOXONE
  6. BACLOFEN. [Concomitant]
     Active Substance: BACLOFEN
  7. CEPHALEXIN [CEFALEXIN] [Concomitant]
     Active Substance: CEPHALEXIN
  8. PRISTIQ EXTENDED-RELEASE [Concomitant]
     Active Substance: DESVENLAFAXINE SUCCINATE
  9. INTELENCE [Concomitant]
     Active Substance: ETRAVIRINE
  10. LOVAZA [Concomitant]
     Active Substance: OMEGA-3-ACID ETHYL ESTERS
  11. METOPROLOL SUCCINATE. [Concomitant]
     Active Substance: METOPROLOL SUCCINATE
     Dosage: UNK
     Dates: start: 20140203
  12. KETOCONAZOLE. [Concomitant]
     Active Substance: KETOCONAZOLE
  13. FLUBLOK QUADRIVALENT [Concomitant]
     Dosage: UNK
     Dates: start: 20181105, end: 20181105
  14. EVZIO [Concomitant]
     Active Substance: NALOXONE HYDROCHLORIDE
  15. NORDITROPIN [Concomitant]
     Active Substance: SOMATROPIN
  16. REXULTI [Concomitant]
     Active Substance: BREXPIPRAZOLE
  17. ABILIFY [Concomitant]
     Active Substance: ARIPIPRAZOLE
  18. NORTRIPTYLINE HCL [Concomitant]
     Active Substance: NORTRIPTYLINE HYDROCHLORIDE
  19. ANDROGEL [Concomitant]
     Active Substance: TESTOSTERONE
  20. LEVOFLOXACIN. [Concomitant]
     Active Substance: LEVOFLOXACIN
  21. DIPHENHYDRAMINE;HYDROCORTISONE;LIDOCAINE;NYSTATIN;TETRACYCLINE [Concomitant]
  22. GENVOYA [Concomitant]
     Active Substance: COBICISTAT\ELVITEGRAVIR\EMTRICITABINE\TENOFOVIR ALAFENAMIDE FUMARATE
     Dosage: 1 DOSAGE FORM, QD
     Route: 048
     Dates: start: 201602, end: 2017
  23. PREZISTA [Concomitant]
     Active Substance: DARUNAVIR ETHANOLATE
     Dosage: UNK
     Dates: start: 2017
  24. ISENTRESS [Concomitant]
     Active Substance: RALTEGRAVIR POTASSIUM
     Dosage: UNK
     Dates: end: 2013
  25. CALCITRIOL. [Concomitant]
     Active Substance: CALCITRIOL
  26. NORCO [Concomitant]
     Active Substance: ACETAMINOPHEN\HYDROCODONE BITARTRATE
  27. TRINTELLIX [Concomitant]
     Active Substance: VORTIOXETINE HYDROBROMIDE
  28. BUPRENORPHINE. [Concomitant]
     Active Substance: BUPRENORPHINE
  29. FLUTICASONE PROPIONATE. [Concomitant]
     Active Substance: FLUTICASONE PROPIONATE
  30. SULFAMETHOXAZOLE;TRIMETHOPRIM [Concomitant]
     Active Substance: SULFAMETHOXAZOLE\TRIMETHOPRIM
  31. DOXYCYCLINE HYCLATE. [Concomitant]
     Active Substance: DOXYCYCLINE HYCLATE
  32. SUPRAX [Concomitant]
     Active Substance: CEFIXIME
  33. CIPRODEX [Concomitant]
     Active Substance: CIPROFLOXACIN HYDROCHLORIDE\DEXAMETHASONE
  34. FLUVIRIN [INFLUENZA VACCINE INACT SAG 3V] [Concomitant]
     Dosage: UNK
     Dates: start: 20131017
  35. PROBIOTICS NOS [Concomitant]
     Active Substance: PROBIOTICS NOS
  36. GABAPENTIN. [Concomitant]
     Active Substance: GABAPENTIN
     Dosage: UNK
     Dates: start: 20190218
  37. AZITHROMYCIN ANHYDROUS. [Concomitant]
     Active Substance: AZITHROMYCIN ANHYDROUS
  38. ELIQUIS [Concomitant]
     Active Substance: APIXABAN
  39. TRIAMTERENE AND HYDROCHLOROTHIAZIDE [Concomitant]
     Active Substance: HYDROCHLOROTHIAZIDE\TRIAMTERENE
  40. METHYLPREDNISOLONE. [Concomitant]
     Active Substance: METHYLPREDNISOLONE
  41. HYDRALAZINE [Concomitant]
     Active Substance: HYDRALAZINE HYDROCHLORIDE
  42. METHADONE HCL [Concomitant]
     Active Substance: METHADONE HYDROCHLORIDE
  43. FAMOTIDINE. [Concomitant]
     Active Substance: FAMOTIDINE
  44. ESCITALOPRAM [Concomitant]
     Active Substance: ESCITALOPRAM OXALATE
  45. DIPHENOXYLATE HYDROCHLORIDE AND ATROPINE SULFATE [Concomitant]
     Active Substance: ATROPINE SULFATE\DIPHENOXYLATE HYDROCHLORIDE
  46. TOPIRAMATE. [Concomitant]
     Active Substance: TOPIRAMATE
  47. FENTANYL. [Concomitant]
     Active Substance: FENTANYL
  48. FLUVIRIN [INFLUENZA VACCINE INACT SAG 3V] [Concomitant]
     Dosage: UNK
     Dates: start: 20141108
  49. STRIBILD [Suspect]
     Active Substance: COBICISTAT\ELVITEGRAVIR\EMTRICITABINE\TENOFOVIR DISOPROXIL FUMARATE
     Indication: HIV INFECTION
     Dosage: UNK
     Route: 048
     Dates: start: 20130612, end: 20130719
  50. PROAIR HFA [Concomitant]
     Active Substance: ALBUTEROL SULFATE
     Dosage: UNK
     Dates: start: 20190218
  51. MOMETASONE FUROATE. [Concomitant]
     Active Substance: MOMETASONE FUROATE
  52. PRAVASTATIN SODIUM. [Concomitant]
     Active Substance: PRAVASTATIN SODIUM
  53. HYDROMORPHONE [Concomitant]
     Active Substance: HYDROMORPHONE
  54. CICLOPIROX. [Concomitant]
     Active Substance: CICLOPIROX
  55. ALLOPURINOL. [Concomitant]
     Active Substance: ALLOPURINOL
  56. AMLODIPINE BESYLATE. [Concomitant]
     Active Substance: AMLODIPINE BESYLATE
  57. RENVELA [Concomitant]
     Active Substance: SEVELAMER CARBONATE
  58. EPZICOM [Concomitant]
     Active Substance: ABACAVIR SULFATE\LAMIVUDINE
     Indication: HIV INFECTION
     Dosage: UNK
     Dates: end: 2013
  59. TRICOR [Concomitant]
     Active Substance: FENOFIBRATE
  60. PANTOPRAZOLE SODIUM. [Concomitant]
     Active Substance: PANTOPRAZOLE SODIUM
  61. COMPLERA [Suspect]
     Active Substance: EMTRICITABINE\RILPIVIRINE HYDROCHLORIDE\TENOFOVIR DISOPROXIL FUMARATE
     Indication: HIV INFECTION
     Dosage: UNK
     Route: 048
     Dates: start: 201307
  62. ULORIC [Concomitant]
     Active Substance: FEBUXOSTAT
     Dosage: UNK
     Dates: start: 20190218
  63. CIPROFLOXACIN. [Concomitant]
     Active Substance: CIPROFLOXACIN
  64. MYTESI [Concomitant]
     Active Substance: CROFELEMER
  65. OXYCODONE HYDROCHLORIDE. [Concomitant]
     Active Substance: OXYCODONE HYDROCHLORIDE
  66. MUPIROCIN. [Concomitant]
     Active Substance: MUPIROCIN
  67. VENLAFAXINE HCL [Concomitant]
     Active Substance: VENLAFAXINE HYDROCHLORIDE
  68. TRIUMEQ [Concomitant]
     Active Substance: ABACAVIR SULFATE\DOLUTEGRAVIR SODIUM\LAMIVUDINE
  69. IBUPROFEN. [Concomitant]
     Active Substance: IBUPROFEN
  70. ANTIPYRINE;BENZOCAINE [Concomitant]
  71. ACYCLOVIR [ACICLOVIR] [Concomitant]
     Active Substance: ACYCLOVIR
  72. ISENTRESS [Concomitant]
     Active Substance: RALTEGRAVIR POTASSIUM
     Dosage: UNK
     Dates: start: 20131122
  73. PREDNISONE. [Concomitant]
     Active Substance: PREDNISONE
  74. AMMONIUM LACTATE. [Concomitant]
     Active Substance: AMMONIUM LACTATE
  75. MOVIPREP [Concomitant]
     Active Substance: ASCORBIC ACID\POLYETHYLENE GLYCOL 3350\POTASSIUM CHLORIDE\SODIUM ASCORBATE\SODIUM CHLORIDE\SODIUM SULFATE
  76. BUPROPION HYDROCHLORIDE XL [Concomitant]
     Active Substance: BUPROPION HYDROCHLORIDE
  77. NUVIGIL [Concomitant]
     Active Substance: ARMODAFINIL
  78. ABACAVIR. [Concomitant]
     Active Substance: ABACAVIR
  79. VIIBRYD [Concomitant]
     Active Substance: VILAZODONE HYDROCHLORIDE
  80. LAMIVUDINE. [Concomitant]
     Active Substance: LAMIVUDINE
     Dosage: UNK
     Dates: start: 2017
  81. NORVIR [Concomitant]
     Active Substance: RITONAVIR
     Dosage: UNK
     Dates: start: 2017
  82. ISENTRESS [Concomitant]
     Active Substance: RALTEGRAVIR POTASSIUM
     Dosage: UNK
     Dates: start: 2017
  83. DIAZEPAM. [Concomitant]
     Active Substance: DIAZEPAM
  84. LISINOPRIL. [Concomitant]
     Active Substance: LISINOPRIL
  85. TRANSDERM SCOP [Concomitant]
     Active Substance: SCOPOLAMINE
  86. LIDOCAINE;PRILOCAINE [Concomitant]
  87. OXYCONTIN [Concomitant]
     Active Substance: OXYCODONE HYDROCHLORIDE
  88. CHANTIX [Concomitant]
     Active Substance: VARENICLINE TARTRATE
  89. PROMETHAZINE [Concomitant]
     Active Substance: PROMETHAZINE HYDROCHLORIDE
  90. VIAGRA [Concomitant]
     Active Substance: SILDENAFIL CITRATE

REACTIONS (11)
  - Chronic kidney disease [Not Recovered/Not Resolved]
  - Emotional distress [Unknown]
  - Renal failure [Unknown]
  - Pain [Unknown]
  - Economic problem [Unknown]
  - Renal tubular necrosis [Unknown]
  - Anxiety [Unknown]
  - Osteoporosis [Not Recovered/Not Resolved]
  - Acute kidney injury [Not Recovered/Not Resolved]
  - Anhedonia [Unknown]
  - Bone density decreased [Unknown]

NARRATIVE: CASE EVENT DATE: 20130719
